FAERS Safety Report 10779367 (Version 5)
Quarter: 2015Q2

REPORT INFORMATION
  Report Type: Spontaneous
  Country: US (occurrence: US)
  Receive Date: 20150210
  Receipt Date: 20150521
  Transmission Date: 20150821
  Serious: Yes (Congenital Anomaly, Other)
  Sender: FDA-Public Use
  Company Number: US-APOTEX-2014AP005750

PATIENT
  Age: 0 Day

DRUGS (2)
  1. PAXIL [Suspect]
     Active Substance: PAROXETINE HYDROCHLORIDE
     Indication: DEPRESSION
     Dosage: 20 MG, UNKNOWN
     Route: 064
     Dates: end: 2001
  2. PAXIL [Suspect]
     Active Substance: PAROXETINE HYDROCHLORIDE
     Indication: ANXIETY
     Dosage: 40 MG, UNK
     Route: 064
     Dates: end: 2001

REACTIONS (9)
  - Tourette^s disorder [Unknown]
  - Jaundice neonatal [Unknown]
  - Depression [Unknown]
  - Otitis media [Unknown]
  - Foetal exposure during pregnancy [Unknown]
  - Tic [Unknown]
  - Attention deficit/hyperactivity disorder [Unknown]
  - Anxiety [Unknown]
  - Talipes [Unknown]

NARRATIVE: CASE EVENT DATE: 20010109
